FAERS Safety Report 23996216 (Version 1)
Quarter: 2024Q2

REPORT INFORMATION
  Report Type: Spontaneous
  Country: BR (occurrence: BR)
  Receive Date: 20240620
  Receipt Date: 20240620
  Transmission Date: 20240717
  Serious: Yes (Other)
  Sender: FDA-Public Use
  Company Number: BR-IMP-2024000388

PATIENT
  Sex: Female

DRUGS (1)
  1. VIGAMOX [Suspect]
     Active Substance: MOXIFLOXACIN HYDROCHLORIDE
     Indication: Cataract operation
     Dosage: UNK, Q8H
     Route: 065

REACTIONS (3)
  - Toxic anterior segment syndrome [Unknown]
  - Corneal oedema [Unknown]
  - Headache [Unknown]
